FAERS Safety Report 25603428 (Version 4)
Quarter: 2025Q3

REPORT INFORMATION
  Report Type: Report from Study
  Country: CA (occurrence: CA)
  Receive Date: 20250724
  Receipt Date: 20250921
  Transmission Date: 20251021
  Serious: Yes (Hospitalization, Other)
  Sender: JOHNSON AND JOHNSON
  Company Number: CA-JNJFOC-20250637052

PATIENT
  Age: 60 Year
  Sex: Female

DRUGS (5)
  1. TALVEY [Suspect]
     Active Substance: TALQUETAMAB-TGVS
     Indication: Plasma cell myeloma
     Route: 058
     Dates: start: 20250623
  2. TALVEY [Suspect]
     Active Substance: TALQUETAMAB-TGVS
     Route: 058
     Dates: start: 20250623
  3. TALVEY [Suspect]
     Active Substance: TALQUETAMAB-TGVS
     Route: 058
     Dates: start: 20250626
  4. TALVEY [Suspect]
     Active Substance: TALQUETAMAB-TGVS
     Route: 058
     Dates: start: 20250710, end: 20250710
  5. TALVEY [Suspect]
     Active Substance: TALQUETAMAB-TGVS
     Route: 058
     Dates: start: 20250714, end: 20250714

REACTIONS (3)
  - Pleural effusion [Recovering/Resolving]
  - Cytokine release syndrome [Unknown]
  - Fall [Unknown]
